FAERS Safety Report 12155961 (Version 7)
Quarter: 2016Q2

REPORT INFORMATION
  Report Type: Report from Study
  Country: AU (occurrence: AU)
  Receive Date: 20160307
  Receipt Date: 20160603
  Transmission Date: 20160815
  Serious: Yes (Hospitalization)
  Sender: FDA-Public Use
  Company Number: AU-AMGEN-AUSCT2016024968

PATIENT
  Age: 72 Year
  Sex: Female
  Weight: 55.5 kg

DRUGS (7)
  1. GLUCOSAMINE [Concomitant]
     Active Substance: GLUCOSAMINE
     Dosage: 1 UNK, UNK
     Route: 048
     Dates: start: 2005
  2. PREGABALIN. [Concomitant]
     Active Substance: PREGABALIN
     Dosage: 100-150 MG, UNK
     Route: 048
     Dates: start: 20150211
  3. LIGNOCAINE [Concomitant]
     Active Substance: LIDOCAINE HYDROCHLORIDE
     Dosage: 3 ML, UNK
     Route: 058
     Dates: start: 20151222, end: 20151222
  4. FISH OIL [Concomitant]
     Active Substance: FISH OIL
     Dosage: 2 UNK, UNK
     Route: 048
     Dates: start: 2005
  5. VITAMIN D [Concomitant]
     Active Substance: CHOLECALCIFEROL
     Dosage: 1 UNK, UNK
     Route: 048
     Dates: start: 2005
  6. COENZYME Q10 [Concomitant]
     Active Substance: UBIDECARENONE
     Dosage: 3 UNK, UNK
     Route: 048
     Dates: start: 2005
  7. TALIMOGENE LAHERPAREPVEC [Suspect]
     Active Substance: TALIMOGENE LAHERPAREPVEC
     Indication: MALIGNANT MELANOMA
     Dosage: 1.5 ML, UNK (10E6PFU/ML TO 10E8PFU/ML)
     Route: 026
     Dates: start: 20151222, end: 20160211

REACTIONS (1)
  - Skin ulcer [Recovered/Resolved]

NARRATIVE: CASE EVENT DATE: 20160223
